FAERS Safety Report 24545711 (Version 2)
Quarter: 2025Q1

REPORT INFORMATION
  Report Type: Spontaneous
  Country: GR (occurrence: GR)
  Receive Date: 20241024
  Receipt Date: 20250124
  Transmission Date: 20250409
  Serious: No
  Sender: PFIZER
  Company Number: GR-PFIZER INC-202400284184

PATIENT
  Age: 14 Year
  Sex: Male
  Weight: 30 kg

DRUGS (1)
  1. GENOTROPIN [Suspect]
     Active Substance: SOMATROPIN
     Indication: Hypopituitarism
     Dosage: 1 MG, DAILY / 6 DAYS (ONE DAY OFF ON SATURDAY)
     Route: 058
     Dates: start: 202311

REACTIONS (2)
  - Device leakage [Recovered/Resolved]
  - Wrong technique in device usage process [Recovered/Resolved]
